FAERS Safety Report 6284968-7 (Version None)
Quarter: 2009Q3

REPORT INFORMATION
  Report Type: 
  Country: None (occurrence: None)
  Receive Date: 20090727
  Receipt Date: 20080813
  Transmission Date: 20100115
  Serious: Yes (Hospitalization)
  Sender: FDA-Public Use
  Company Number: US-ABBOTT-08P-163-0470646-00

PATIENT
  Age: 56 Year
  Sex: Male

DRUGS (23)
  1. NORVIR [Suspect]
     Indication: HIV INFECTION
     Route: 048
     Dates: start: 20071001
  2. NORVIR [Suspect]
     Route: 048
     Dates: start: 20071017
  3. DARUNAVIR [Suspect]
     Indication: HIV INFECTION
     Route: 048
     Dates: start: 20071001, end: 20071008
  4. DARUNAVIR [Suspect]
     Route: 048
     Dates: start: 20071017
  5. EMTRICITABINE [Concomitant]
     Indication: DRUG USE FOR UNKNOWN INDICATION
     Route: 048
     Dates: start: 20071001
  6. EMTRICITABINE [Concomitant]
     Route: 048
     Dates: start: 20071009
  7. MK-0518(ANTIVIRALS FOR SYSTEMIC USE) [Concomitant]
     Indication: HIV INFECTION
     Route: 048
     Dates: start: 20071001
  8. MK-0518(ANTIVIRALS FOR SYSTEMIC USE) [Concomitant]
     Route: 048
     Dates: start: 20071009
  9. SAQUINAVIR MESILATE [Concomitant]
     Indication: HIV INFECTION
     Route: 065
     Dates: start: 20030717
  10. DIDANOSINE [Concomitant]
     Indication: HIV INFECTION
     Route: 065
     Dates: start: 20061109
  11. DIDANOSINE [Concomitant]
  12. LISINOPRIL [Concomitant]
     Indication: DRUG USE FOR UNKNOWN INDICATION
     Dates: start: 20071001
  13. LISINOPRIL [Concomitant]
  14. RAMIPRIL [Concomitant]
     Indication: DRUG USE FOR UNKNOWN INDICATION
     Route: 065
     Dates: start: 20070726
  15. CLOTRIMAZOLE [Concomitant]
     Indication: DRUG USE FOR UNKNOWN INDICATION
     Route: 065
     Dates: start: 20030911
  16. DAPSONE [Concomitant]
     Indication: DRUG USE FOR UNKNOWN INDICATION
     Route: 065
     Dates: start: 20010501
  17. DICYCLOVERINE [Concomitant]
     Indication: DRUG USE FOR UNKNOWN INDICATION
     Route: 065
     Dates: start: 20020708
  18. DRONABINOL [Concomitant]
     Indication: DRUG USE FOR UNKNOWN INDICATION
     Route: 065
     Dates: start: 20000804
  19. ITRACONAZOLE [Concomitant]
     Indication: DRUG USE FOR UNKNOWN INDICATION
     Route: 065
     Dates: start: 20060713
  20. TEMAZEPAM [Concomitant]
     Indication: DRUG USE FOR UNKNOWN INDICATION
     Route: 065
     Dates: start: 20031211
  21. ESOMEPRAZOLE MAGNESIUM [Concomitant]
     Indication: DRUG USE FOR UNKNOWN INDICATION
     Route: 065
     Dates: start: 20050901
  22. LORAZEPAM [Concomitant]
     Indication: DRUG USE FOR UNKNOWN INDICATION
     Route: 065
     Dates: start: 20050106
  23. LOPINAVIR [Concomitant]
     Indication: HIV INFECTION
     Dates: start: 20070411

REACTIONS (2)
  - DIARRHOEA [None]
  - VOMITING [None]
